FAERS Safety Report 23038587 (Version 1)
Quarter: 2023Q4

REPORT INFORMATION
  Report Type: Spontaneous
  Country: US (occurrence: US)
  Receive Date: 20231006
  Receipt Date: 20231006
  Transmission Date: 20240110
  Serious: No
  Sender: FDA-Public Use
  Company Number: US-SA-SAC20231003002046

PATIENT
  Age: 59 Year
  Sex: Female

DRUGS (1)
  1. DUPIXENT [Suspect]
     Active Substance: DUPILUMAB
     Indication: Neurodermatitis
     Dosage: 300 MG, QOW
     Route: 058
     Dates: start: 202308

REACTIONS (7)
  - Headache [Unknown]
  - Fibromyalgia [Unknown]
  - Arthralgia [Unknown]
  - Malaise [Unknown]
  - Gastrointestinal motility disorder [Unknown]
  - Ocular hyperaemia [Unknown]
  - Eye operation [Unknown]

NARRATIVE: CASE EVENT DATE: 20230101
